FAERS Safety Report 10595162 (Version 2)
Quarter: 2014Q4

REPORT INFORMATION
  Report Type: Spontaneous
  Country: NL (occurrence: None)
  Receive Date: 20141118
  Receipt Date: 20141202
  Transmission Date: 20150529
  Serious: Yes (Hospitalization)
  Sender: FDA-Public Use
  Company Number: 2014NL009796

PATIENT
  Age: 79 Year
  Sex: Male

DRUGS (1)
  1. ELIGARD [Suspect]
     Active Substance: LEUPROLIDE ACETATE
     Indication: PROSTATE CANCER
     Dosage: Q3 MONTHS
     Route: 058
     Dates: end: 20140514

REACTIONS (1)
  - Hospitalisation [None]

NARRATIVE: CASE EVENT DATE: 20141103
